FAERS Safety Report 9681353 (Version 1)
Quarter: 2013Q4

REPORT INFORMATION
  Report Type: Spontaneous
  Country: US (occurrence: None)
  Receive Date: 20131108
  Receipt Date: 20131108
  Transmission Date: 20140711
  Serious: Yes (Hospitalization, Disabling, Other)
  Sender: FDA-Public Use
  Company Number: None

PATIENT
  Age: 71 Year
  Sex: Female
  Weight: 61.24 kg

DRUGS (3)
  1. BONIVA 150MG GENENTECH [Suspect]
     Indication: OSTEOPOROSIS
     Dosage: 1 150MG PILL MONTHLY TAKEN BY MOUTH
     Route: 048
     Dates: start: 20060901, end: 20110901
  2. BONIVA 150MG GENENTECH [Suspect]
     Indication: PROPHYLAXIS
     Dosage: 1 150MG PILL MONTHLY TAKEN BY MOUTH
     Route: 048
     Dates: start: 20060901, end: 20110901
  3. FOSAMAX 10MG MERCK [Suspect]
     Indication: OSTEOPOROSIS
     Dosage: 1 PILL ONCE DAILY TAKEN BY MOUTH
     Route: 048

REACTIONS (2)
  - Stress fracture [None]
  - Femur fracture [None]
